FAERS Safety Report 4781822-4 (Version None)
Quarter: 2005Q3

REPORT INFORMATION
  Report Type: 
  Country: None (occurrence: None)
  Receive Date: 20050927
  Receipt Date: 20050907
  Transmission Date: 20060218
  Serious: Yes (Other)
  Sender: FDA-Public Use
  Company Number: USA0509107499

PATIENT
  Age: 51 Year
  Sex: Male

DRUGS (6)
  1. CYMBALTA [Suspect]
     Indication: ANXIETY
     Dosage: 30 MG DAY
     Dates: start: 20050701, end: 20050906
  2. PROZAC [Suspect]
     Indication: ANXIETY
     Dosage: 20 MG DAY
  3. HYDROCHLOROTHIAZIDE W/LOSARTAN [Concomitant]
  4. LIPITOR [Concomitant]
  5. COZAAR [Concomitant]
  6. LEXAPRO [Concomitant]

REACTIONS (8)
  - BLOOD PRESSURE DECREASED [None]
  - COLD SWEAT [None]
  - DIZZINESS [None]
  - DRUG DOSE OMISSION [None]
  - FEELING ABNORMAL [None]
  - MALE SEXUAL DYSFUNCTION [None]
  - TREATMENT NONCOMPLIANCE [None]
  - WEIGHT INCREASED [None]
